FAERS Safety Report 23904288 (Version 1)
Quarter: 2024Q2

REPORT INFORMATION
  Report Type: Spontaneous
  Country: US (occurrence: US)
  Receive Date: 20240527
  Receipt Date: 20240527
  Transmission Date: 20240716
  Serious: No
  Sender: FDA-Public Use
  Company Number: US-BIOVITRUM-2023-US-011593

PATIENT
  Sex: Female
  Weight: 8.39 kg

DRUGS (5)
  1. SYNAGIS [Suspect]
     Active Substance: PALIVIZUMAB
     Indication: Congenital absence of bile ducts
     Dosage: INTO THE MUSCLE. ONCE A MONTH, SYNAGIS 100 MG SDV/INJ PF 1 ML
     Route: 030
     Dates: start: 202212
  2. SYNAGIS [Suspect]
     Active Substance: PALIVIZUMAB
     Indication: Chronic respiratory failure
     Dosage: INTO THE MUSCLE. ONCE A MONTH, SYNAGIS 100 MG SDV/INJ PF 0.5 ML
     Route: 030
     Dates: start: 202212
  3. SYNAGIS [Suspect]
     Active Substance: PALIVIZUMAB
     Indication: Fallot^s tetralogy
  4. SYNAGIS [Suspect]
     Active Substance: PALIVIZUMAB
     Indication: Atrioventricular septal defect
  5. SYNAGIS [Suspect]
     Active Substance: PALIVIZUMAB
     Indication: Trisomy 21

REACTIONS (2)
  - Injection site swelling [Unknown]
  - Injection site rash [Unknown]
